FAERS Safety Report 18872305 (Version 1)
Quarter: 2021Q1

REPORT INFORMATION
  Report Type: Spontaneous
  Country: US (occurrence: US)
  Receive Date: 20210210
  Receipt Date: 20210210
  Transmission Date: 20210420
  Serious: Yes (Hospitalization)
  Sender: FDA-Public Use
  Company Number: None

PATIENT
  Age: 74 Year
  Sex: Female
  Weight: 59.1 kg

DRUGS (12)
  1. ASPIRIN. [Concomitant]
     Active Substance: ASPIRIN
  2. ATORVASTATIN [Concomitant]
     Active Substance: ATORVASTATIN
  3. INSULIN DETEMIR AND LISPRO [Concomitant]
  4. MAGNESIUM AMINO ACIDS CHELATE [Concomitant]
  5. METFORMIN [Concomitant]
     Active Substance: METFORMIN HYDROCHLORIDE
  6. BAMLANIVIMAB FOR EUA [Suspect]
     Active Substance: BAMLANIVIMAB
     Indication: COVID-19
     Route: 042
     Dates: start: 20201207, end: 20201207
  7. OMEPRAZOLE. [Concomitant]
     Active Substance: OMEPRAZOLE
  8. MELATONIN [Concomitant]
     Active Substance: MELATONIN
  9. SITAGLIPTIN [Concomitant]
     Active Substance: SITAGLIPTIN
  10. LEVOTHYROXINE. [Concomitant]
     Active Substance: LEVOTHYROXINE
  11. RAMIPRIL. [Concomitant]
     Active Substance: RAMIPRIL
  12. SOLIFENACIN [Concomitant]
     Active Substance: SOLIFENACIN

REACTIONS (15)
  - Electrocardiogram T wave inversion [None]
  - Ejection fraction decreased [None]
  - Aortic stenosis [None]
  - Left ventricular end-diastolic pressure increased [None]
  - Mitral valve incompetence [None]
  - Dyspnoea [None]
  - Left ventricular hypertrophy [None]
  - Cough [None]
  - Pleural effusion [None]
  - Blood pressure increased [None]
  - Lung opacity [None]
  - Orthopnoea [None]
  - Ventricular hypokinesia [None]
  - Dyspnoea exertional [None]
  - Cardiac perfusion defect [None]

NARRATIVE: CASE EVENT DATE: 20210119
